FAERS Safety Report 5693150-3 (Version None)
Quarter: 2008Q2

REPORT INFORMATION
  Report Type: 
  Country: None (occurrence: None)
  Receive Date: 20080402
  Receipt Date: 20080402
  Transmission Date: 20081010
  Serious: Yes (Other)
  Sender: FDA-Public Use
  Company Number: None

PATIENT
  Sex: Male
  Weight: 104.3273 kg

DRUGS (1)
  1. LIPITOR [Suspect]
     Indication: BLOOD CHOLESTEROL INCREASED
     Dosage: 20 MG. DAILY PO
     Route: 048
     Dates: start: 20040910, end: 20070105

REACTIONS (8)
  - ACTIVITIES OF DAILY LIVING IMPAIRED [None]
  - ARTHRALGIA [None]
  - FATIGUE [None]
  - FEELING ABNORMAL [None]
  - JOINT LOCK [None]
  - MUSCULAR WEAKNESS [None]
  - NODULE [None]
  - PAIN IN EXTREMITY [None]
